FAERS Safety Report 16460360 (Version 2)
Quarter: 2019Q2

REPORT INFORMATION
  Report Type: Spontaneous
  Country: FI (occurrence: FI)
  Receive Date: 20190620
  Receipt Date: 20190621
  Transmission Date: 20190711
  Serious: Yes (Hospitalization, Other)
  Sender: FDA-Public Use
  Company Number: FI-ASTRAZENECA-2019SE86860

PATIENT
  Age: 21182 Day
  Sex: Male

DRUGS (5)
  1. ATORVASTATIN [Concomitant]
     Active Substance: ATORVASTATIN
     Indication: BLOOD CHOLESTEROL INCREASED
     Dosage: 1 X 20 MG
     Dates: start: 20180621
  2. PLAVIX [Concomitant]
     Active Substance: CLOPIDOGREL BISULFATE
     Indication: ANGIOPLASTY
     Dosage: 1 X 75 MG
     Dates: start: 20180903, end: 20190604
  3. ISMOX [Concomitant]
     Active Substance: ISOSORBIDE MONONITRATE
     Dosage: 2 X 10 MG
     Dates: start: 20180621
  4. BISOPROLOL [Concomitant]
     Active Substance: BISOPROLOL
     Dosage: 1 X 2,5 MG
     Dates: start: 20180621
  5. FORXIGA [Suspect]
     Active Substance: DAPAGLIFLOZIN
     Indication: DIABETES MELLITUS
     Dosage: 10.0MG UNKNOWN
     Route: 048
     Dates: start: 20190523, end: 20190610

REACTIONS (6)
  - Haematochezia [Recovering/Resolving]
  - Dehydration [Recovering/Resolving]
  - Large intestinal obstruction [Recovering/Resolving]
  - Ileus paralytic [Recovering/Resolving]
  - Pyrexia [Recovering/Resolving]
  - Gastrointestinal motility disorder [Unknown]

NARRATIVE: CASE EVENT DATE: 20190610
